FAERS Safety Report 5080821-5 (Version None)
Quarter: 2006Q3

REPORT INFORMATION
  Report Type: 
  Country: None (occurrence: None)
  Receive Date: 20060809
  Receipt Date: 20060731
  Transmission Date: 20061208
  Serious: Yes (Hospitalization, Other)
  Sender: FDA-Public Use
  Company Number: 2006AL002124

PATIENT
  Age: 74 Year
  Sex: 0

DRUGS (7)
  1. DICLOFENAC [Suspect]
     Indication: PAIN
     Dosage: 75 MG; PO
     Route: 048
     Dates: start: 20060120, end: 20060123
  2. AMLODIPINE [Concomitant]
  3. WARFARIN SODIUM [Concomitant]
  4. CANDESARTAN [Concomitant]
  5. BENDROFLUMETHIAZIDE [Concomitant]
  6. ATENOLOL [Concomitant]
  7. AMIODARONE HCL [Concomitant]

REACTIONS (4)
  - COUGH [None]
  - DYSPNOEA [None]
  - PNEUMONITIS [None]
  - WHEEZING [None]
